FAERS Safety Report 7080805-1 (Version None)
Quarter: 2010Q4

REPORT INFORMATION
  Report Type: 
  Country: None (occurrence: None)
  Receive Date: 20101103
  Receipt Date: 20101025
  Transmission Date: 20110411
  Serious: Yes (Hospitalization)
  Sender: FDA-Public Use
  Company Number: US-ASTRAZENECA-2010SE50495

PATIENT
  Age: 623 Month
  Sex: Female

DRUGS (2)
  1. NEXIUM [Suspect]
     Route: 048
     Dates: start: 20100201
  2. BP MEDS [Concomitant]

REACTIONS (2)
  - INTESTINAL OBSTRUCTION [None]
  - SMALL INTESTINAL RESECTION [None]
